FAERS Safety Report 6716459-0 (Version None)
Quarter: 2010Q2

REPORT INFORMATION
  Report Type: 
  Country: None (occurrence: None)
  Receive Date: 20100507
  Receipt Date: 20100505
  Transmission Date: 20101027
  Serious: Yes (Hospitalization)
  Sender: FDA-Public Use
  Company Number: US-B.I. PHARMACEUTICALS,INC./RIDGEFIELD-2010-BP-05160BP

PATIENT
  Sex: Female

DRUGS (15)
  1. SPIRIVA [Suspect]
     Indication: CHRONIC OBSTRUCTIVE PULMONARY DISEASE
     Dosage: 18 MCG
     Route: 055
     Dates: start: 20040101
  2. ALPRAZOLAM [Concomitant]
     Indication: ANXIETY
  3. AMLODIPINE [Concomitant]
     Indication: HYPERTENSION
  4. TOPROL-XL [Concomitant]
     Indication: HYPERTENSION
  5. LYRICA [Concomitant]
     Indication: HERPES ZOSTER
  6. LYRICA [Concomitant]
     Indication: PAIN
  7. AMITRIPTLINE HYDROCHLORIDE TAB [Concomitant]
     Indication: ANXIETY
  8. SINEMET [Concomitant]
     Indication: MOVEMENT DISORDER
  9. CLONAZEPAM [Concomitant]
     Indication: MOVEMENT DISORDER
  10. FUROSEMIDE [Concomitant]
     Indication: HYPERTENSION
  11. NASONEX [Concomitant]
     Indication: CHRONIC OBSTRUCTIVE PULMONARY DISEASE
  12. ADVAIR DISKUS 100/50 [Concomitant]
     Indication: CHRONIC OBSTRUCTIVE PULMONARY DISEASE
  13. ALBUTEROL [Concomitant]
     Indication: CHRONIC OBSTRUCTIVE PULMONARY DISEASE
  14. ASPIRIN [Concomitant]
     Indication: PROPHYLAXIS
  15. VITAMINS [Concomitant]
     Indication: PROPHYLAXIS

REACTIONS (3)
  - CANDIDIASIS [None]
  - DYSURIA [None]
  - PNEUMONIA [None]
